FAERS Safety Report 9784639 (Version 2)
Quarter: 2014Q1

REPORT INFORMATION
  Report Type: Spontaneous
  Country: US (occurrence: US)
  Receive Date: 20131226
  Receipt Date: 20140327
  Transmission Date: 20141002
  Serious: Yes (Other)
  Sender: FDA-Public Use
  Company Number: US-PFIZER INC-2013369335

PATIENT
  Age: 68 Year
  Sex: Female
  Weight: 74.83 kg

DRUGS (7)
  1. PRISTIQ [Suspect]
     Indication: MAJOR DEPRESSION
     Dosage: 300MG IN MORNING AND 100MG IN THE EVENING
  2. PRISTIQ [Suspect]
     Indication: POST-TRAUMATIC STRESS DISORDER
  3. LYRICA [Suspect]
     Indication: FIBROMYALGIA
     Dosage: 75 MG, DAILY
     Route: 048
  4. LYRICA [Suspect]
     Indication: MYALGIA
     Dosage: 75 MG, 2X/DAY
     Route: 048
  5. MEMANTINE [Concomitant]
     Indication: ATTENTION DEFICIT/HYPERACTIVITY DISORDER
     Dosage: 10 MG, 2X/DAY
  6. ALBUTEROL SULFATE [Concomitant]
     Indication: ASTHMA
     Dosage: 2-3 TIMES A DAY
  7. DULERA [Concomitant]
     Indication: ASTHMA
     Dosage: 200 UG, 2X/DAY

REACTIONS (1)
  - Cardiac disorder [Unknown]
